FAERS Safety Report 6698805-X (Version None)
Quarter: 2010Q2

REPORT INFORMATION
  Report Type: 
  Country: None (occurrence: None)
  Receive Date: 20100427
  Receipt Date: 20100419
  Transmission Date: 20101027
  Serious: Yes (Other)
  Sender: FDA-Public Use
  Company Number: PHHY2010SA24979

PATIENT
  Age: 50 Year
  Sex: Female

DRUGS (1)
  1. TEGRETOL [Suspect]
     Indication: DIABETIC NEUROPATHY
     Dosage: 200 MG, DAILY
     Route: 048
     Dates: start: 20100412, end: 20100412

REACTIONS (1)
  - ANGIOEDEMA [None]
